FAERS Safety Report 4530735-1 (Version None)
Quarter: 2004Q4

REPORT INFORMATION
  Report Type: 
  Country: None (occurrence: None)
  Receive Date: 20041217
  Receipt Date: 20041208
  Transmission Date: 20050328
  Serious: Yes (Hospitalization)
  Sender: FDA-Public Use
  Company Number: 2004-02388

PATIENT
  Age: 3 Year
  Sex: Male

DRUGS (2)
  1. CEFUHEXAL [Suspect]
     Indication: PYREXIA
     Dosage: 250MG TWICE PER DAY
     Route: 048
     Dates: start: 20041125, end: 20041128
  2. NO CONCURRENT MEDICATION [Concomitant]

REACTIONS (3)
  - AGGRESSION [None]
  - AGITATION [None]
  - CRYING [None]
